FAERS Safety Report 7220450-8 (Version None)
Quarter: 2011Q1

REPORT INFORMATION
  Report Type: 
  Country: None (occurrence: None)
  Receive Date: 20110111
  Receipt Date: 20101230
  Transmission Date: 20110831
  Serious: Yes (Hospitalization, Other)
  Sender: FDA-Public Use
  Company Number: PHEH2008US03781

PATIENT
  Sex: Female

DRUGS (63)
  1. COUMADIN [Concomitant]
  2. OXYCODONE HCL [Concomitant]
  3. YEAST [Concomitant]
  4. METHADONE [Concomitant]
     Dosage: 10 MG, QHS AND PRN
  5. CIPROFLOXACIN [Concomitant]
  6. PREDNISONE [Concomitant]
     Indication: DYSPNOEA
  7. DIFLUCAN [Concomitant]
     Indication: PYREXIA
  8. DEPO-PROVERA [Concomitant]
  9. DILAUDID [Concomitant]
  10. MARCAINE [Concomitant]
  11. REGLAN [Concomitant]
     Dosage: 10 MG P.O, QID
  12. LORAZEPAM [Concomitant]
     Dosage: 2 MG P.O QHS
     Route: 048
  13. CELEXA [Concomitant]
     Indication: PSYCHOTIC DISORDER
     Dosage: 60 MG, QD
  14. NEURONTIN [Concomitant]
     Dosage: 300 MG, TID
  15. RITALIN [Concomitant]
     Dosage: 80 MG, BID
  16. AREDIA [Suspect]
  17. CHEMOTHERAPEUTICS,OTHER [Concomitant]
  18. PENICILLIN ^GRUNENTHAL^ [Concomitant]
  19. SENNA [Concomitant]
  20. CEPHALEXIN [Concomitant]
  21. PROZAC [Concomitant]
  22. THALIDOMIDE [Concomitant]
     Indication: RENAL CELL CARCINOMA
  23. QUINOLONE ANTIBACTERIALS [Concomitant]
     Indication: RESPIRATORY TRACT INFECTION
  24. TETRACYCLINE [Concomitant]
  25. ZANTAC [Concomitant]
  26. MECLOMEN [Concomitant]
  27. PHAZYME [Concomitant]
     Dosage: P.O DAILY
     Route: 048
  28. XELODA [Concomitant]
     Indication: RENAL CELL CARCINOMA
  29. RISPERDAL [Concomitant]
  30. OXYGEN [Concomitant]
     Indication: HYPOXIA
  31. LEXAPRO [Concomitant]
  32. XANAX [Concomitant]
  33. CHLORHEXIDINE GLUCONATE [Concomitant]
  34. MAGNESIUM OXIDE [Concomitant]
  35. OXYCONTIN [Concomitant]
  36. PAXIL [Concomitant]
  37. ORTHO-CEPT [Concomitant]
     Dosage: P.O DAILY
     Route: 048
  38. ARGATROBAN [Concomitant]
     Indication: DEEP VEIN THROMBOSIS
  39. DOXYCYCLINE [Concomitant]
     Indication: RESPIRATORY TRACT INFECTION
  40. CYMBALTA [Concomitant]
     Dosage: 60 MG, QD
  41. KLOR-CON [Concomitant]
  42. LASIX [Concomitant]
     Indication: OEDEMA
  43. TEQUIN [Concomitant]
     Indication: PYREXIA
  44. BACTRIM [Concomitant]
     Route: 048
  45. COMPAZINE [Concomitant]
     Dosage: 10 MG, PRN
  46. BIAXIN [Concomitant]
     Dosage: 250 MG, BID
     Route: 048
  47. RADIATION THERAPY [Concomitant]
  48. MACROBID [Concomitant]
     Dosage: 100 MG P.O. QHS
  49. OXYCODONE HCL [Concomitant]
     Dosage: 5 MG Q. 4H
  50. GEMCITABINE [Concomitant]
     Indication: RENAL CELL CARCINOMA
  51. LOVENOX [Concomitant]
     Indication: PROPHYLAXIS
  52. SEROQUEL [Concomitant]
     Dosage: UNK
     Dates: end: 20090729
  53. VICODIN [Concomitant]
  54. AMBIEN [Concomitant]
     Dosage: UNK
     Route: 048
  55. BLOOD AND RELATED PRODUCTS [Concomitant]
  56. ZOMETA [Suspect]
  57. MELATONIN [Concomitant]
  58. NEXIUM [Concomitant]
  59. PRILOSEC [Concomitant]
  60. AVELOX [Concomitant]
     Indication: PNEUMONIA
  61. CYTOXAN [Concomitant]
     Indication: RENAL CELL CARCINOMA
  62. ORAL CONTRACEPTIVE NOS [Concomitant]
  63. VIOXX [Concomitant]
     Dosage: 25 MG, QD
     Route: 048

REACTIONS (53)
  - INFECTION [None]
  - PAIN IN EXTREMITY [None]
  - CELLULITIS [None]
  - AMNESIA [None]
  - DIZZINESS [None]
  - CHRONIC SINUSITIS [None]
  - THROMBOCYTOPENIA [None]
  - CERVICAL DYSPLASIA [None]
  - AMENORRHOEA [None]
  - PARAESTHESIA [None]
  - MUSCULOSKELETAL PAIN [None]
  - NEOPLASM MALIGNANT [None]
  - URINARY TRACT INFECTION [None]
  - CONSTIPATION [None]
  - BRONCHITIS [None]
  - OSTEONECROSIS OF JAW [None]
  - DYSPNOEA [None]
  - DEEP VEIN THROMBOSIS [None]
  - SPINAL CORD DISORDER [None]
  - OSTEOMYELITIS [None]
  - ACUTE PSYCHOSIS [None]
  - CANDIDIASIS [None]
  - KERATITIS [None]
  - INTERSTITIAL LUNG DISEASE [None]
  - WEIGHT DECREASED [None]
  - PANCYTOPENIA [None]
  - ACTINOMYCES TEST POSITIVE [None]
  - HALLUCINATION, AUDITORY [None]
  - SPEECH DISORDER [None]
  - INSOMNIA [None]
  - PYELOCALIECTASIS [None]
  - VAGINAL HAEMORRHAGE [None]
  - LUNG INFILTRATION [None]
  - BREATH ODOUR [None]
  - ASTHENIA [None]
  - STOMATITIS [None]
  - PNEUMONIA [None]
  - PAIN [None]
  - DEFORMITY [None]
  - RESPIRATORY FAILURE [None]
  - BONE DISORDER [None]
  - DISCOMFORT [None]
  - PARANOIA [None]
  - HYPOKALAEMIA [None]
  - VOMITING [None]
  - SMALL INTESTINAL OBSTRUCTION [None]
  - HYPOXIA [None]
  - SEBORRHOEIC KERATOSIS [None]
  - DELIRIUM [None]
  - HEADACHE [None]
  - OEDEMA PERIPHERAL [None]
  - METASTASES TO BONE [None]
  - BONE LESION [None]
